FAERS Safety Report 14519328 (Version 2)
Quarter: 2018Q3

REPORT INFORMATION
  Report Type: Report from Study
  Country: US (occurrence: US)
  Receive Date: 20180212
  Receipt Date: 20180831
  Transmission Date: 20181010
  Serious: Yes (Other)
  Sender: FDA-Public Use
  Company Number: US-TESARO, INC-US-2018TSO00664

PATIENT
  Sex: Female

DRUGS (2)
  1. ZEJULA [Suspect]
     Active Substance: NIRAPARIB
     Indication: FALLOPIAN TUBE CANCER
     Dosage: 200 MG, QD
     Route: 048
     Dates: start: 20170530
  2. ZEJULA [Suspect]
     Active Substance: NIRAPARIB
     Dosage: 200 MG, UNK
     Route: 048

REACTIONS (16)
  - Blood glucose increased [Not Recovered/Not Resolved]
  - Red blood cell count decreased [Unknown]
  - Tenderness [Unknown]
  - Ear pain [Not Recovered/Not Resolved]
  - Neutropenia [Not Recovered/Not Resolved]
  - Thrombocytopenia [Not Recovered/Not Resolved]
  - Vaginal discharge [Unknown]
  - Blood sodium decreased [Unknown]
  - Haemoglobin decreased [Unknown]
  - Vaginal lesion [Recovered/Resolved]
  - Lymphadenopathy [Unknown]
  - Blood alkaline phosphatase increased [Unknown]
  - Vulval disorder [Unknown]
  - Toothache [Not Recovered/Not Resolved]
  - Neuropathy peripheral [Not Recovered/Not Resolved]
  - Haematocrit decreased [Unknown]
